FAERS Safety Report 14613570 (Version 1)
Quarter: 2018Q1

REPORT INFORMATION
  Report Type: Spontaneous
  Country: RU (occurrence: RU)
  Receive Date: 20180308
  Receipt Date: 20180308
  Transmission Date: 20180509
  Serious: Yes (Hospitalization, Other)
  Sender: FDA-Public Use
  Company Number: RU-MYLANLABS-2018M1014377

PATIENT
  Age: 23 Year
  Sex: Female

DRUGS (6)
  1. METHYLPREDNISOLONE. [Suspect]
     Active Substance: METHYLPREDNISOLONE
     Indication: PEMPHIGOID
     Dosage: 300 MG DAILY FOR TWO WEEKS
     Route: 042
     Dates: start: 20171002
  2. AZATHIOPRINE. [Concomitant]
     Active Substance: AZATHIOPRINE
     Indication: ERYTHEMA MULTIFORME
     Dosage: 100 MG/DAY
     Route: 065
  3. DEXAMETHASONE. [Suspect]
     Active Substance: DEXAMETHASONE
     Indication: PEMPHIGOID
     Dosage: 8 MG
     Route: 042
     Dates: start: 2016, end: 2017
  4. DAPSONE. [Concomitant]
     Active Substance: DAPSONE
     Indication: ERYTHEMA MULTIFORME
     Dosage: 100 MG A DAY
     Route: 065
  5. DAPSONE. [Concomitant]
     Active Substance: DAPSONE
     Dosage: 50 MG
     Route: 065
  6. PREDNISOLONE. [Suspect]
     Active Substance: PREDNISOLONE
     Indication: PEMPHIGOID
     Dosage: 80 MG A DAY
     Route: 065

REACTIONS (27)
  - Cushing^s syndrome [Recovered/Resolved]
  - Osteoporosis [Recovered/Resolved]
  - Oedema [Recovered/Resolved]
  - Hypoproteinaemia [Recovered/Resolved]
  - Gastric ulcer [Recovered/Resolved]
  - Gastritis [Recovered/Resolved]
  - Pain of skin [Recovered/Resolved]
  - Muscle spasms [Recovered/Resolved]
  - Osteomalacia [Recovered/Resolved]
  - Substance-induced psychotic disorder [Recovered/Resolved]
  - Back pain [Recovered/Resolved]
  - Oesophagitis [Recovered/Resolved]
  - Insomnia [Recovered/Resolved]
  - Vascular fragility [Recovered/Resolved]
  - Hypercoagulation [Recovered/Resolved]
  - Chest pain [Recovered/Resolved]
  - Hypocalcaemia [Recovered/Resolved]
  - Euphoric mood [Recovered/Resolved]
  - Agitation [Recovered/Resolved]
  - Maternal exposure during pregnancy [Recovered/Resolved]
  - Rash [Recovered/Resolved]
  - Spinal fracture [Recovered/Resolved]
  - Hypokalaemia [Recovered/Resolved]
  - Duodenal ulcer [Recovered/Resolved]
  - Paraesthesia [Recovered/Resolved]
  - Hypocoagulable state [Recovered/Resolved]
  - Myopathy [Recovered/Resolved]

NARRATIVE: CASE EVENT DATE: 201701
